FAERS Safety Report 25805839 (Version 1)
Quarter: 2025Q3

REPORT INFORMATION
  Report Type: Spontaneous
  Country: US (occurrence: US)
  Receive Date: 20250916
  Receipt Date: 20250916
  Transmission Date: 20251021
  Serious: Yes (Hospitalization, Other)
  Sender: MEITHEAL PHARMACEUTICALS
  Company Number: US-MEITHEAL-2025MPLIT00326

PATIENT
  Age: 58 Year
  Sex: Female

DRUGS (6)
  1. CARBOPLATIN [Suspect]
     Active Substance: CARBOPLATIN
     Indication: Endometrial cancer stage III
     Route: 042
  2. CISPLATIN [Suspect]
     Active Substance: CISPLATIN
     Indication: Endometrial cancer stage III
     Route: 042
  3. PACLITAXEL [Suspect]
     Active Substance: PACLITAXEL
     Indication: Endometrial cancer stage III
     Route: 042
  4. PACLITAXEL [Suspect]
     Active Substance: PACLITAXEL
     Route: 042
  5. IBUPROFEN [Suspect]
     Active Substance: IBUPROFEN
     Indication: Abdominal pain lower
     Route: 065
  6. LEVOTHYROXINE [Concomitant]
     Active Substance: LEVOTHYROXINE
     Indication: Product used for unknown indication
     Dosage: DAILY
     Route: 065

REACTIONS (1)
  - Gastric haemorrhage [Recovered/Resolved]
